FAERS Safety Report 5625546-X (Version None)
Quarter: 2008Q1

REPORT INFORMATION
  Report Type: 
  Country: None (occurrence: None)
  Receive Date: 20080211
  Receipt Date: 20080211
  Transmission Date: 20080703
  Serious: Yes (Other)
  Sender: FDA-Public Use
  Company Number: None

PATIENT
  Age: 56 Year
  Sex: Male
  Weight: 209 kg

DRUGS (1)
  1. DAPTOMYCIN   500MG   CUBIST [Suspect]
     Indication: STAPHYLOCOCCAL BACTERAEMIA
     Dosage: 1000 MG Q24H IV
     Route: 042
     Dates: start: 20080102, end: 20080106

REACTIONS (2)
  - BLOOD CREATINE PHOSPHOKINASE INCREASED [None]
  - BLOOD CREATININE INCREASED [None]
